FAERS Safety Report 14211874 (Version 2)
Quarter: 2019Q1

REPORT INFORMATION
  Report Type: Report from Study
  Country: US (occurrence: US)
  Receive Date: 20171121
  Receipt Date: 20190328
  Transmission Date: 20190417
  Serious: Yes (Life-Threatening, Hospitalization, Other)
  Sender: FDA-Public Use
  Company Number: US-BRISTOL-MYERS SQUIBB COMPANY-BMS-2017-098710

PATIENT
  Age: 51 Year
  Sex: Male
  Weight: 104.31 kg

DRUGS (2)
  1. FPA008 [Suspect]
     Active Substance: CABIRALIZUMAB
     Indication: HEAD AND NECK CANCER
     Dosage: 4 MG/KG, Q2WK
     Route: 042
     Dates: start: 20170705
  2. NIVOLUMAB [Suspect]
     Active Substance: NIVOLUMAB
     Indication: HEAD AND NECK CANCER
     Dosage: 3 MG/KG, Q2WK
     Route: 042
     Dates: start: 20170705

REACTIONS (1)
  - Subdural haematoma [Unknown]

NARRATIVE: CASE EVENT DATE: 20171028
